FAERS Safety Report 4656933-4 (Version None)
Quarter: 2005Q2

REPORT INFORMATION
  Report Type: 
  Country: None (occurrence: None)
  Receive Date: 20050506
  Receipt Date: 20050422
  Transmission Date: 20051028
  Serious: No
  Sender: FDA-Public Use
  Company Number: 10950

PATIENT

DRUGS (4)
  1. MITOMYCIN-C BULK POWDER [Suspect]
     Indication: GASTRIC CANCER
     Dosage: 7 MG/M2 OTH
  2. DOXORUBICIN HCL [Suspect]
     Indication: GASTRIC CANCER
     Dosage: 20 MG/M2 OTH
  3. FLUOROURACIL [Suspect]
     Indication: GASTRIC CANCER
     Dosage: 2000 MG/M2 WEEKLY
  4. LEUCOVORIN CALCIUM [Suspect]
     Indication: GASTRIC CANCER
     Dosage: 500

REACTIONS (1)
  - HAEMOLYTIC URAEMIC SYNDROME [None]
